FAERS Safety Report 24787438 (Version 2)
Quarter: 2025Q1

REPORT INFORMATION
  Report Type: Spontaneous
  Country: JP (occurrence: JP)
  Receive Date: 20241230
  Receipt Date: 20250203
  Transmission Date: 20250408
  Serious: No
  Sender: GALDERMA
  Company Number: JP-GALDERMA-JP2024010787

PATIENT

DRUGS (3)
  1. NEMOLIZUMAB [Suspect]
     Active Substance: NEMOLIZUMAB
     Indication: Dermatitis atopic
     Route: 058
     Dates: start: 20240612, end: 20240612
  2. NEMOLIZUMAB [Suspect]
     Active Substance: NEMOLIZUMAB
     Route: 058
     Dates: start: 2024, end: 2024
  3. SHINGRIX [Concomitant]
     Active Substance: RECOMBINANT VARICELLA ZOSTER VIRUS (VZV) GLYCOPROTEIN E
     Indication: Prophylaxis
     Route: 030
     Dates: start: 20240515, end: 20240724

REACTIONS (2)
  - Erythema [Recovering/Resolving]
  - Interleukin-2 receptor increased [Recovering/Resolving]

NARRATIVE: CASE EVENT DATE: 20240622
